FAERS Safety Report 24204768 (Version 1)
Quarter: 2024Q3

REPORT INFORMATION
  Report Type: Spontaneous
  Country: US (occurrence: US)
  Receive Date: 20240813
  Receipt Date: 20240813
  Transmission Date: 20241017
  Serious: No
  Sender: MYLAN
  Company Number: US-MYLANLABS-2024M1074165

PATIENT
  Sex: Female
  Weight: 56.7 kg

DRUGS (1)
  1. RIMSO-50 [Suspect]
     Active Substance: DIMETHYL SULFOXIDE
     Indication: Cystitis interstitial
     Dosage: 50 PERCENT
     Route: 043
     Dates: start: 20240508

REACTIONS (4)
  - Bladder pain [Not Recovered/Not Resolved]
  - Nocturia [Not Recovered/Not Resolved]
  - Dysgeusia [Not Recovered/Not Resolved]
  - Drug ineffective [Not Recovered/Not Resolved]
